FAERS Safety Report 23527489 (Version 4)
Quarter: 2025Q4

REPORT INFORMATION
  Report Type: Report from Study
  Country: US (occurrence: US)
  Receive Date: 20240215
  Receipt Date: 20251229
  Transmission Date: 20260118
  Serious: Yes (Other)
  Sender: PFIZER
  Company Number: US-PFIZER INC-202400040421

PATIENT
  Age: 84 Year
  Sex: Female

DRUGS (1)
  1. XELJANZ XR [Suspect]
     Active Substance: TOFACITINIB CITRATE
     Indication: Rheumatoid arthritis
     Dosage: 11MG TAKE 1 TABLET BY MOUTH EVERY DAY
     Route: 048

REACTIONS (6)
  - Toothache [Not Recovered/Not Resolved]
  - Tooth disorder [Unknown]
  - Acne [Recovered/Resolved]
  - Blood pressure fluctuation [Unknown]
  - Radicular pain [Recovering/Resolving]
  - Confusional state [Unknown]
